FAERS Safety Report 5460362-3 (Version None)
Quarter: 2007Q2

REPORT INFORMATION
  Report Type: 
  Country: None (occurrence: None)
  Receive Date: 20070402
  Receipt Date: 20070122
  Transmission Date: 20071010
  Serious: Yes (Hospitalization)
  Sender: FDA-Public Use
  Company Number: GAM-006-07-US

PATIENT
  Age: 50 Year
  Sex: Female
  Weight: 86 kg

DRUGS (2)
  1. OCTAGAM [Suspect]
     Indication: MYASTHENIA GRAVIS
     Dosage: 400MG/KG IV
     Route: 042
     Dates: start: 20061127, end: 20061201
  2. OCTAGAM [Suspect]

REACTIONS (1)
  - MENINGITIS ASEPTIC [None]
